FAERS Safety Report 12980461 (Version 2)
Quarter: 2016Q4

REPORT INFORMATION
  Report Type: Spontaneous
  Country: IT (occurrence: IT)
  Receive Date: 20161128
  Receipt Date: 20161219
  Transmission Date: 20170207
  Serious: Yes (Hospitalization)
  Sender: FDA-Public Use
  Company Number: IT-SA-2016SA212770

PATIENT
  Age: 55 Year
  Sex: Female

DRUGS (3)
  1. CARDICOR [Suspect]
     Active Substance: BISOPROLOL
     Dosage: DOSE:1 UNIT(S)
     Route: 048
     Dates: start: 20120101, end: 20131124
  2. APROVEL [Suspect]
     Active Substance: IRBESARTAN
     Dosage: DOSE:1 UNIT(S)
     Route: 048
     Dates: start: 20120101, end: 20131124
  3. METHOTREXATE (METHOTREXATE SODIUM) [Concomitant]
     Active Substance: METHOTREXATE SODIUM
     Route: 058

REACTIONS (3)
  - Hypokalaemia [Recovered/Resolved]
  - Blood pressure increased [Recovered/Resolved]
  - Chest discomfort [Unknown]

NARRATIVE: CASE EVENT DATE: 20131124
